FAERS Safety Report 19055684 (Version 13)
Quarter: 2025Q1

REPORT INFORMATION
  Report Type: Report from Study
  Country: JP (occurrence: JP)
  Receive Date: 20210324
  Receipt Date: 20250224
  Transmission Date: 20250408
  Serious: Yes (Hospitalization)
  Sender: ALNYLAM PHARMACEUTICALS
  Company Number: JP-ALNYLAM PHARMACEUTICALS, INC.-ALN-2020-000037

PATIENT

DRUGS (17)
  1. ONPATTRO [Suspect]
     Active Substance: PATISIRAN SODIUM
     Indication: Hereditary neuropathic amyloidosis
     Route: 041
     Dates: start: 20200111, end: 20230201
  2. CALONAL [Concomitant]
     Active Substance: ACETAMINOPHEN
     Indication: Prophylaxis
     Dosage: 500 MILLIGRAM, SINGLE
     Route: 065
     Dates: start: 20200111, end: 20230201
  3. DEXAMETHASONE SODIUM PHOSPHATE [Concomitant]
     Active Substance: DEXAMETHASONE SODIUM PHOSPHATE
     Indication: Prophylaxis
     Route: 042
     Dates: start: 20200111
  4. DEXAMETHASONE SODIUM PHOSPHATE [Concomitant]
     Active Substance: DEXAMETHASONE SODIUM PHOSPHATE
     Route: 042
     Dates: start: 20210217, end: 20210217
  5. POLARAMINE [Concomitant]
     Active Substance: DEXCHLORPHENIRAMINE MALEATE
     Indication: Prophylaxis
     Dosage: 5 MILLIGRAM, SINGLE
     Route: 013
     Dates: start: 20200111, end: 20230201
  6. POLARAMINE [Concomitant]
     Active Substance: DEXCHLORPHENIRAMINE MALEATE
     Route: 013
     Dates: start: 20210217, end: 20210217
  7. GASTER [Concomitant]
     Active Substance: FAMOTIDINE
     Indication: Prophylaxis
     Dosage: 20 MILLIGRAM, SINGLE
     Route: 042
     Dates: start: 20200111, end: 20230201
  8. GASTER [Concomitant]
     Active Substance: FAMOTIDINE
     Route: 042
     Dates: start: 20210217, end: 20210217
  9. ACETAMINOPHEN [Concomitant]
     Active Substance: ACETAMINOPHEN
     Indication: Prophylaxis
     Route: 048
     Dates: start: 20210217, end: 20210217
  10. DEXAMETHASONE [Concomitant]
     Active Substance: DEXAMETHASONE
     Indication: Prophylaxis
     Dosage: 9.9 MILLIGRAM, SINGLE
     Route: 065
     Dates: start: 20200111, end: 20230201
  11. BISOPROLOL FUMARATE [Concomitant]
     Active Substance: BISOPROLOL FUMARATE
     Indication: Hypertension
     Dosage: 0.625 MILLIGRAM, QD
     Route: 065
  12. NEUROTROPIN [Concomitant]
     Active Substance: NEUROTROPIN
     Indication: Hereditary neuropathic amyloidosis
     Dosage: 4 UNITS, BID
     Route: 065
  13. MIYA-BM [Concomitant]
     Active Substance: CLOSTRIDIUM BUTYRICUM SPORES STRAIN M-55
     Indication: Hereditary neuropathic amyloidosis
     Dosage: 1 DOSAGE FORM, BID
     Route: 048
  14. LANSOPRAZOLE [Concomitant]
     Active Substance: LANSOPRAZOLE
     Indication: Hereditary neuropathic amyloidosis
     Dosage: 30 MILLIGRAM, QD
     Route: 048
     Dates: end: 20200721
  15. GENTAMICIN SULFATE [Concomitant]
     Active Substance: GENTAMICIN SULFATE
     Indication: Skin erosion
     Dosage: PROPER DOSE, QD
     Route: 061
     Dates: start: 20200205, end: 20200408
  16. VYNDAQEL [Concomitant]
     Active Substance: TAFAMIDIS MEGLUMINE
     Indication: Hereditary neuropathic amyloidosis
     Dosage: 20 MILLIGRAM, QD
     Route: 048
     Dates: start: 201910, end: 202003
  17. VONOPRAZAN FUMARATE [Concomitant]
     Active Substance: VONOPRAZAN FUMARATE
     Indication: Hereditary neuropathic amyloidosis
     Dosage: 10 MILLIGRAM, QD
     Route: 065
     Dates: start: 20200722

REACTIONS (9)
  - Infusion site reaction [Recovering/Resolving]
  - Lymphangitis [Recovering/Resolving]
  - Infusion site cellulitis [Recovering/Resolving]
  - Aspartate aminotransferase increased [Recovered/Resolved]
  - Aspartate aminotransferase increased [Not Recovered/Not Resolved]
  - Blood pressure increased [Recovered/Resolved]
  - Infusion site extravasation [Recovered/Resolved]
  - Alanine aminotransferase increased [Recovered/Resolved]
  - Alanine aminotransferase increased [Not Recovered/Not Resolved]

NARRATIVE: CASE EVENT DATE: 20200111
